FAERS Safety Report 7525828-0 (Version None)
Quarter: 2011Q2

REPORT INFORMATION
  Report Type: 
  Country: None (occurrence: None)
  Receive Date: 20110606
  Receipt Date: 20110519
  Transmission Date: 20111010
  Serious: Yes (Hospitalization)
  Sender: FDA-Public Use
  Company Number: A0784169A

PATIENT
  Age: 40 Year
  Sex: Female

DRUGS (5)
  1. AVANDIA [Suspect]
     Dosage: 4MG TWICE PER DAY
     Route: 048
     Dates: start: 19990101, end: 20080101
  2. AVANDAMET [Suspect]
     Route: 048
  3. CRESTOR [Concomitant]
  4. COREG [Concomitant]
  5. DIOVAN [Concomitant]

REACTIONS (2)
  - MYOCARDIAL ISCHAEMIA [None]
  - MYOCARDIAL INFARCTION [None]
